FAERS Safety Report 13366451 (Version 2)
Quarter: 2017Q2

REPORT INFORMATION
  Report Type: Spontaneous
  Country: FR (occurrence: FR)
  Receive Date: 20170323
  Receipt Date: 20170421
  Transmission Date: 20170830
  Serious: Yes (Other)
  Sender: FDA-Public Use
  Company Number: PHHY2017FR008320

PATIENT
  Sex: Female

DRUGS (1)
  1. COSENTYX [Suspect]
     Active Substance: SECUKINUMAB
     Indication: ANKYLOSING SPONDYLITIS
     Dosage: 150 MG, UNK
     Route: 065
     Dates: start: 20160906, end: 20161129

REACTIONS (18)
  - Middle insomnia [Unknown]
  - Inappropriate schedule of drug administration [Unknown]
  - Ankylosing spondylitis [Not Recovered/Not Resolved]
  - Asthenia [Unknown]
  - Skin haemorrhage [Unknown]
  - Ichthyosis [Unknown]
  - Skin fissures [Not Recovered/Not Resolved]
  - Eczema nummular [Unknown]
  - Skin lesion [Not Recovered/Not Resolved]
  - Pain in extremity [Unknown]
  - Arthralgia [Unknown]
  - Musculoskeletal pain [Unknown]
  - Dyshidrotic eczema [Unknown]
  - Skin exfoliation [Not Recovered/Not Resolved]
  - Pustular psoriasis [Unknown]
  - Tendonitis [Unknown]
  - Bone pain [Unknown]
  - Hyperkeratosis [Unknown]
